FAERS Safety Report 4944811-2 (Version None)
Quarter: 2006Q1

REPORT INFORMATION
  Report Type: 
  Country: None (occurrence: None)
  Receive Date: 20060315
  Receipt Date: 20050419
  Transmission Date: 20060701
  Serious: Yes (Hospitalization)
  Sender: FDA-Public Use
  Company Number: NO-MERCK-0504NOR00032

PATIENT
  Age: 48 Year
  Sex: Female

DRUGS (4)
  1. VIOXX [Suspect]
     Indication: SYNOVITIS
     Route: 048
     Dates: start: 20031130, end: 20031201
  2. PENICILLIN V POTASSIUM [Concomitant]
     Indication: SUSPICIOUSNESS
     Route: 048
     Dates: start: 20031201, end: 20031201
  3. WARFARIN SODIUM [Concomitant]
     Indication: PULMONARY EMBOLISM
     Route: 048
     Dates: start: 20031201, end: 20040601
  4. ACETAMINOPHEN AND CODEINE PHOSPHATE [Concomitant]
     Indication: PAIN
     Route: 048
     Dates: start: 20031201

REACTIONS (1)
  - PULMONARY EMBOLISM [None]
